FAERS Safety Report 9301665 (Version 1)
Quarter: 2012Q4

REPORT INFORMATION
  Report Type: Spontaneous
  Country: AU (occurrence: None)
  Receive Date: 20121109
  Receipt Date: 20121109
  Transmission Date: 20130627
  Serious: Yes (Other)
  Sender: FDA-Public Use
  Company Number: 2011S1000737

PATIENT
  Age: 17 Year
  Sex: Female

DRUGS (1)
  1. CUBICIN (DAPTOMYCIN) [Suspect]
     Indication: ENTEROCOCCAL INFECTION
     Dates: start: 20111013

REACTIONS (2)
  - Leukopenia [None]
  - Neutropenia [None]
